FAERS Safety Report 4944137-7 (Version None)
Quarter: 2006Q1

REPORT INFORMATION
  Report Type: 
  Country: None (occurrence: None)
  Receive Date: 20060315
  Receipt Date: 20060306
  Transmission Date: 20060701
  Serious: Yes (Death, Hospitalization)
  Sender: FDA-Public Use
  Company Number: DE-JNJFOC-20040907372

PATIENT
  Age: 66 Year
  Sex: Female

DRUGS (9)
  1. REMICADE [Suspect]
     Indication: RHEUMATOID ARTHRITIS
     Dosage: DOSE: 200 TO 300 MG  4 INFUSIONS IN TOTAL
     Route: 042
  2. NOVALGIN [Concomitant]
  3. CELEBREX [Concomitant]
  4. PREDNISOLONE [Concomitant]
  5. METHOTREXATE [Concomitant]
  6. LEDERFOLAT [Concomitant]
  7. CALCIMAGON [Concomitant]
  8. NORVASC [Concomitant]
  9. ARAVA [Concomitant]

REACTIONS (1)
  - DISSEMINATED TUBERCULOSIS [None]
